FAERS Safety Report 5778488-3 (Version None)
Quarter: 2008Q2

REPORT INFORMATION
  Report Type: 
  Country: None (occurrence: None)
  Receive Date: 20080618
  Receipt Date: 20080618
  Transmission Date: 20081010
  Serious: Yes (Hospitalization)
  Sender: FDA-Public Use
  Company Number: None

PATIENT
  Age: 63 Year
  Sex: Male
  Weight: 127.6 kg

DRUGS (2)
  1. BUMETANIDE [Suspect]
     Indication: ASCITES
     Dosage: 2 MG BID PO
     Route: 048
     Dates: start: 20080424
  2. METOLAZONE [Suspect]
     Indication: ASCITES
     Dosage: 5 MG PO
     Route: 048
     Dates: start: 20080521

REACTIONS (1)
  - HYPOKALAEMIA [None]
